FAERS Safety Report 17741488 (Version 2)
Quarter: 2020Q2

REPORT INFORMATION
  Report Type: Report from Study
  Country: PA (occurrence: PA)
  Receive Date: 20200504
  Receipt Date: 20200525
  Transmission Date: 20200714
  Serious: Yes (Other)
  Sender: FDA-Public Use
  Company Number: PHHY2019PA059947

PATIENT
  Sex: Female

DRUGS (3)
  1. GILENYA [Suspect]
     Active Substance: FINGOLIMOD HYDROCHLORIDE
     Indication: MULTIPLE SCLEROSIS
     Dosage: 0.5 MG, UNK
     Route: 065
     Dates: start: 201601, end: 201901
  2. GILENYA [Suspect]
     Active Substance: FINGOLIMOD HYDROCHLORIDE
     Dosage: 1 DF, QD
     Route: 048
     Dates: start: 201903
  3. GILENYA [Suspect]
     Active Substance: FINGOLIMOD HYDROCHLORIDE
     Dosage: 0.5 MG, QD
     Route: 048
     Dates: start: 20190311

REACTIONS (14)
  - Multiple sclerosis relapse [Recovered/Resolved]
  - Balance disorder [Recovered/Resolved]
  - Gait disturbance [Recovered/Resolved]
  - Vertigo [Unknown]
  - Astigmatism [Unknown]
  - Feeling abnormal [Unknown]
  - Visual impairment [Unknown]
  - Eye pain [Unknown]
  - Hypoaesthesia [Recovered/Resolved]
  - Chest pain [Recovering/Resolving]
  - Metamorphopsia [Unknown]
  - Anxiety [Recovering/Resolving]
  - Macular oedema [Unknown]
  - Neck pain [Unknown]
